FAERS Safety Report 6045391-3 (Version None)
Quarter: 2009Q1

REPORT INFORMATION
  Report Type: 
  Country: None (occurrence: None)
  Receive Date: 20090121
  Receipt Date: 20090116
  Transmission Date: 20090719
  Serious: Yes (Hospitalization, Other)
  Sender: FDA-Public Use
  Company Number: US-JNJFOC-20081105267

PATIENT
  Sex: Female
  Weight: 78.02 kg

DRUGS (16)
  1. DURAGESIC-100 [Suspect]
     Route: 062
  2. DURAGESIC-100 [Suspect]
     Indication: PAIN
     Route: 062
  3. PLAVIX [Concomitant]
     Indication: CARDIAC DISORDER
     Route: 048
  4. ELAVIL [Concomitant]
     Indication: DEPRESSION
     Route: 048
  5. CRESTOR [Concomitant]
     Indication: BLOOD CHOLESTEROL
     Route: 048
  6. EFFEXOR XR [Concomitant]
     Indication: DEPRESSION
     Route: 048
  7. ACTONEL [Concomitant]
     Indication: BONE DISORDER
     Route: 048
  8. ESTRACE [Concomitant]
     Indication: HORMONE REPLACEMENT THERAPY
     Route: 048
  9. XANAX [Concomitant]
     Indication: ANXIETY
     Route: 048
  10. SECTRAL [Concomitant]
     Indication: BLOOD PRESSURE
     Route: 048
  11. NITROGLYCERIN [Concomitant]
     Indication: CHEST PAIN
     Dosage: AS NEEDED
     Route: 048
  12. ALTACE [Concomitant]
     Indication: CARDIAC DISORDER
     Route: 048
  13. ASPIRIN [Concomitant]
     Indication: ANTICOAGULANT THERAPY
     Route: 048
  14. CQ10 [Concomitant]
     Indication: VITAMIN SUPPLEMENTATION
     Route: 048
  15. LASIX [Concomitant]
  16. LORCET-HD [Concomitant]
     Indication: PAIN
     Dosage: 10/650 MG PILL AS NEEDED
     Route: 048

REACTIONS (3)
  - AMNESIA [None]
  - COMA [None]
  - DYSPNOEA [None]
